FAERS Safety Report 5290582-2 (Version None)
Quarter: 2007Q2

REPORT INFORMATION
  Report Type: 
  Country: None (occurrence: None)
  Receive Date: 20070405
  Receipt Date: 20070405
  Transmission Date: 20071010
  Serious: Yes (Life-Threatening)
  Sender: FDA-Public Use
  Company Number: None

PATIENT
  Age: 54 Year
  Sex: Female
  Weight: 54 kg

DRUGS (8)
  1. LINEZOLID [Suspect]
     Indication: INFECTION
     Dosage: 600 MG PO/SQ Q 12?
     Route: 048
  2. AMIKACIN [Concomitant]
  3. AMPHO B [Concomitant]
  4. AZITHROMYCIN [Concomitant]
  5. CALCIUM CARBONATE [Concomitant]
  6. CLONAZEPAM [Concomitant]
  7. INSULIN [Concomitant]
  8. FENTANYL [Concomitant]

REACTIONS (1)
  - PLATELET COUNT DECREASED [None]
